FAERS Safety Report 24993442 (Version 1)
Quarter: 2025Q1

REPORT INFORMATION
  Report Type: Spontaneous
  Country: US (occurrence: US)
  Receive Date: 20250221
  Receipt Date: 20250221
  Transmission Date: 20250408
  Serious: No
  Sender: BRISTOL-MYERS SQUIBB COMPANY
  Company Number: US-BRISTOL-MYERS SQUIBB COMPANY-2025-023902

PATIENT
  Age: 54 Year
  Sex: Female

DRUGS (4)
  1. ELIQUIS [Suspect]
     Active Substance: APIXABAN
     Indication: Product used for unknown indication
  2. TYVASO [Suspect]
     Active Substance: TREPROSTINIL
     Indication: Pulmonary arterial hypertension
     Dosage: 8 BREATHS
     Route: 055
     Dates: start: 202308
  3. TYVASO [Suspect]
     Active Substance: TREPROSTINIL
     Dosage: 9 BREATHS
     Route: 055
  4. TYVASO [Suspect]
     Active Substance: TREPROSTINIL
     Dosage: 10 BREATHS
     Route: 055

REACTIONS (5)
  - Epistaxis [Unknown]
  - Oropharyngeal pain [Unknown]
  - Throat irritation [Unknown]
  - Cough [Unknown]
  - Headache [Unknown]
